FAERS Safety Report 7643136-4 (Version None)
Quarter: 2011Q3

REPORT INFORMATION
  Report Type: 
  Country: None (occurrence: None)
  Receive Date: 20110729
  Receipt Date: 20110721
  Transmission Date: 20111222
  Serious: Yes (Hospitalization)
  Sender: FDA-Public Use
  Company Number: US-BIOGENIDEC-2011BI023449

PATIENT
  Age: 57 Year
  Sex: Male

DRUGS (15)
  1. TYSABRI [Suspect]
     Indication: MULTIPLE SCLEROSIS
     Route: 042
     Dates: start: 20070712, end: 20110519
  2. GABAPENTIN [Concomitant]
     Indication: MULTIPLE SCLEROSIS
  3. TESTOSTERONE [Concomitant]
  4. ASPIRIN [Concomitant]
  5. ARICEPT [Concomitant]
  6. COLESTIPOL HYDROCHLORIDE [Concomitant]
  7. IMITREX [Concomitant]
  8. VITAMIN B-12 [Concomitant]
     Route: 030
  9. PAXIL [Concomitant]
  10. AMBIEN CR [Concomitant]
  11. PROVIGIL [Concomitant]
  12. BACLOFEN [Concomitant]
  13. PREVACID [Concomitant]
  14. DETROL LA [Concomitant]
  15. VITAMIN D [Concomitant]

REACTIONS (2)
  - SMALL INTESTINAL PERFORATION [None]
  - SMALL INTESTINAL OBSTRUCTION [None]
